FAERS Safety Report 8170150-5 (Version None)
Quarter: 2012Q1

REPORT INFORMATION
  Report Type: 
  Country: None (occurrence: None)
  Receive Date: 20120228
  Receipt Date: 20120220
  Transmission Date: 20120608
  Serious: Yes (Hospitalization)
  Sender: FDA-Public Use
  Company Number: PHHY2012AU009157

PATIENT
  Sex: Female

DRUGS (3)
  1. CLOZARIL [Suspect]
     Indication: SCHIZOAFFECTIVE DISORDER
     Dosage: 325 MG
     Dates: start: 20040331
  2. LITHIUM [Concomitant]
     Indication: AFFECTIVE DISORDER
     Dosage: 450 MG, BID
     Route: 048
     Dates: start: 20111001
  3. OLANZAPINE [Concomitant]

REACTIONS (2)
  - SCHIZOAFFECTIVE DISORDER [None]
  - AFFECTIVE DISORDER [None]
